FAERS Safety Report 10235514 (Version 2)
Quarter: 2014Q2

REPORT INFORMATION
  Report Type: Spontaneous
  Country: US (occurrence: US)
  Receive Date: 20140613
  Receipt Date: 20140613
  Transmission Date: 20141212
  Serious: Yes (Death)
  Sender: FDA-Public Use
  Company Number: US-ASTRAZENECA-2007UW10590

PATIENT
  Age: 71 Year
  Sex: Female

DRUGS (5)
  1. SEROQUEL [Suspect]
     Indication: DEMENTIA ALZHEIMER^S TYPE
     Route: 048
     Dates: start: 20060120
  2. SEROQUEL [Suspect]
     Indication: DEMENTIA
     Route: 048
     Dates: start: 20060120
  3. LIPITOR [Concomitant]
     Dates: start: 20060120
  4. CLONAZEPAM [Concomitant]
     Dates: start: 20060120
  5. PRILOSEC [Concomitant]
     Dates: start: 20060218

REACTIONS (3)
  - Death [Fatal]
  - Type 2 diabetes mellitus [Unknown]
  - Arrhythmia [Unknown]
